FAERS Safety Report 17972962 (Version 2)
Quarter: 2020Q3

REPORT INFORMATION
  Report Type: Report from Study
  Country: MX (occurrence: MX)
  Receive Date: 20200702
  Receipt Date: 20200918
  Transmission Date: 20201103
  Serious: Yes (Death)
  Sender: FDA-Public Use
  Company Number: MX-ADVANZ PHARMA-202006006784

PATIENT

DRUGS (9)
  1. CLARITHROMYCIN. [Concomitant]
     Active Substance: CLARITHROMYCIN
     Indication: COVID-19
     Dosage: UNK
     Dates: start: 20200521
  2. ENOXAPARIN [Concomitant]
     Active Substance: ENOXAPARIN
     Indication: COVID-19
     Dosage: UNK
     Dates: start: 20200521
  3. INSULIN [Concomitant]
     Active Substance: INSULIN NOS
     Indication: COVID-19
     Dosage: UNK
     Dates: start: 20200521
  4. LOSARTAN. [Concomitant]
     Active Substance: LOSARTAN
     Indication: COVID-19
     Dosage: UNK
     Dates: start: 20200521
  5. FUROSEMIDE. [Concomitant]
     Active Substance: FUROSEMIDE
     Indication: COVID-19
     Dosage: UNK
     Dates: start: 20200521
  6. HYDROXYCHLOROQUINE SULFATE (AUTHORIZED GENERIC),PLAQUENIL [Suspect]
     Active Substance: HYDROXYCHLOROQUINE SULFATE
     Indication: COVID-19
     Dosage: Q12H (EVERY 12 HOURS)
     Dates: start: 20200521, end: 20200531
  7. METHYLPREDNISOLONE. [Concomitant]
     Active Substance: METHYLPREDNISOLONE
     Indication: COVID-19
     Dosage: UNK
     Dates: start: 20200521
  8. HYDROXYCHLOROQUINE SULFATE (AUTHORIZED GENERIC),PLAQUENIL [Suspect]
     Active Substance: HYDROXYCHLOROQUINE SULFATE
     Indication: PRODUCT USE IN UNAPPROVED INDICATION
  9. PARACETAMOL [Concomitant]
     Active Substance: ACETAMINOPHEN
     Indication: COVID-19
     Dosage: UNK
     Dates: start: 20200521

REACTIONS (5)
  - Blood potassium decreased [Unknown]
  - Off label use [Unknown]
  - Blood sodium increased [Unknown]
  - Respiratory disorder [Fatal]
  - Blood creatinine increased [Unknown]

NARRATIVE: CASE EVENT DATE: 20200521
